FAERS Safety Report 26108866 (Version 1)
Quarter: 2025Q4

REPORT INFORMATION
  Report Type: Report from Study
  Country: EU (occurrence: EU)
  Receive Date: 20251201
  Receipt Date: 20251201
  Transmission Date: 20260118
  Serious: Yes (Other)
  Sender: MYLAN
  Company Number: EU-GSK-FR2025GSK047523

PATIENT
  Age: 78 Year
  Sex: Female

DRUGS (12)
  1. PACLITAXEL [Suspect]
     Active Substance: PACLITAXEL
     Indication: Endometrial cancer
     Dosage: 60 MILLIGRAM/SQ. METER, QW, WEEKLY (DOSE ADJUSTMENT SINCE INITIATION)
     Dates: start: 20250106
  2. PACLITAXEL [Suspect]
     Active Substance: PACLITAXEL
     Dosage: 60 MILLIGRAM/SQ. METER, QW, WEEKLY (DOSE ADJUSTMENT SINCE INITIATION)
     Route: 042
     Dates: start: 20250106
  3. PACLITAXEL [Suspect]
     Active Substance: PACLITAXEL
     Dosage: 60 MILLIGRAM/SQ. METER, QW, WEEKLY (DOSE ADJUSTMENT SINCE INITIATION)
     Route: 042
     Dates: start: 20250106
  4. PACLITAXEL [Suspect]
     Active Substance: PACLITAXEL
     Dosage: 60 MILLIGRAM/SQ. METER, QW, WEEKLY (DOSE ADJUSTMENT SINCE INITIATION)
     Dates: start: 20250106
  5. CARBOPLATIN [Suspect]
     Active Substance: CARBOPLATIN
     Indication: Endometrial cancer
     Dosage: 2 AUC WEEKLY (DOSE ADJUSTMENT SINCE INITIATION)
     Dates: start: 20250106
  6. CARBOPLATIN [Suspect]
     Active Substance: CARBOPLATIN
     Dosage: 2 AUC WEEKLY (DOSE ADJUSTMENT SINCE INITIATION)
     Route: 042
     Dates: start: 20250106
  7. CARBOPLATIN [Suspect]
     Active Substance: CARBOPLATIN
     Dosage: 2 AUC WEEKLY (DOSE ADJUSTMENT SINCE INITIATION)
     Route: 042
     Dates: start: 20250106
  8. CARBOPLATIN [Suspect]
     Active Substance: CARBOPLATIN
     Dosage: 2 AUC WEEKLY (DOSE ADJUSTMENT SINCE INITIATION)
     Dates: start: 20250106
  9. DOSTARLIMAB [Suspect]
     Active Substance: DOSTARLIMAB
     Indication: Endometrial cancer
     Dosage: 500 MILLIGRAM, Q3W
     Dates: start: 20250106
  10. DOSTARLIMAB [Suspect]
     Active Substance: DOSTARLIMAB
     Dosage: 500 MILLIGRAM, Q3W
     Route: 042
     Dates: start: 20250106
  11. DOSTARLIMAB [Suspect]
     Active Substance: DOSTARLIMAB
     Dosage: 500 MILLIGRAM, Q3W
     Route: 042
     Dates: start: 20250106
  12. DOSTARLIMAB [Suspect]
     Active Substance: DOSTARLIMAB
     Dosage: 500 MILLIGRAM, Q3W
     Dates: start: 20250106

REACTIONS (4)
  - Adrenal insufficiency [Unknown]
  - Malignant neoplasm progression [Unknown]
  - Asthenia [Unknown]
  - Incorrect dose administered [Unknown]

NARRATIVE: CASE EVENT DATE: 20250201
